FAERS Safety Report 19283690 (Version 3)
Quarter: 2021Q4

REPORT INFORMATION
  Report Type: Spontaneous
  Country: JP (occurrence: JP)
  Receive Date: 20210521
  Receipt Date: 20211025
  Transmission Date: 20220303
  Serious: Yes (Death, Other)
  Sender: FDA-Public Use
  Company Number: JP-ASTELLAS-2021JP009199

PATIENT
  Age: 68 Year
  Sex: Male
  Weight: 64 kg

DRUGS (9)
  1. XTANDI [Suspect]
     Active Substance: ENZALUTAMIDE
     Indication: Prostate cancer
     Route: 048
     Dates: start: 20200622, end: 20201003
  2. DEGARELIX [Suspect]
     Active Substance: DEGARELIX
     Indication: Prostate cancer
     Route: 058
     Dates: start: 20200622, end: 20200622
  3. DEGARELIX [Suspect]
     Active Substance: DEGARELIX
     Indication: Prostate cancer
     Route: 058
     Dates: start: 20200720, end: 20201003
  4. LIPITOR [Concomitant]
     Active Substance: ATORVASTATIN CALCIUM
     Indication: Dyslipidaemia
     Route: 048
  5. FEBUXOSTAT [Concomitant]
     Active Substance: FEBUXOSTAT
     Indication: Hyperuricaemia
     Route: 048
  6. TRAPIDIL [Concomitant]
     Active Substance: TRAPIDIL
     Indication: Arrhythmia
     Route: 048
  7. TRAPIDIL [Concomitant]
     Active Substance: TRAPIDIL
     Indication: Angina pectoris
  8. CETRAXATE HYDROCHLORIDE [Concomitant]
     Active Substance: CETRAXATE HYDROCHLORIDE
     Indication: Product used for unknown indication
     Dosage: 0.5 G, THRICE DAILY
     Route: 048
  9. LYRICA [Concomitant]
     Active Substance: PREGABALIN
     Indication: Herpes zoster
     Route: 048
     Dates: start: 20200914, end: 20201003

REACTIONS (5)
  - Drowning [Fatal]
  - Arrhythmia [Fatal]
  - Loss of consciousness [Fatal]
  - Angina pectoris [Fatal]
  - Myocardial infarction [Fatal]

NARRATIVE: CASE EVENT DATE: 20201003
